FAERS Safety Report 5984351-5 (Version None)
Quarter: 2008Q4

REPORT INFORMATION
  Report Type: 
  Country: None (occurrence: None)
  Receive Date: 20081208
  Receipt Date: 20081201
  Transmission Date: 20090506
  Serious: Yes (Other)
  Sender: FDA-Public Use
  Company Number: PHHY2008FR30513

PATIENT

DRUGS (4)
  1. ZOMETA [Suspect]
     Indication: METASTASES TO BONE
     Dosage: UNK
     Route: 042
     Dates: start: 20080101
  2. AVASTIN [Suspect]
     Indication: BREAST CANCER
     Dosage: UNK
     Dates: start: 20080425, end: 20080509
  3. FEMARA [Concomitant]
  4. SUTENT [Concomitant]
     Dosage: UNK
     Dates: start: 20080911

REACTIONS (5)
  - BONE DISORDER [None]
  - IMPAIRED HEALING [None]
  - INFECTION [None]
  - OSTEONECROSIS [None]
  - TOOTH EXTRACTION [None]
